FAERS Safety Report 18474659 (Version 12)
Quarter: 2021Q3

REPORT INFORMATION
  Report Type: Spontaneous
  Country: US (occurrence: US)
  Receive Date: 20201106
  Receipt Date: 20210920
  Transmission Date: 20211014
  Serious: Yes (Other)
  Sender: FDA-Public Use
  Company Number: US-BAYER-2020-235180

PATIENT
  Age: 33 Year
  Sex: Male

DRUGS (33)
  1. KOGENATE FS [Suspect]
     Active Substance: ANTIHEMOPHILIC FACTOR, HUMAN RECOMBINANT
     Dosage: 1 DF, TO TREAT LEFT WRIST TARGET JOINT BLEED,DOUBLE DOSE.
  2. KOGENATE FS [Suspect]
     Active Substance: ANTIHEMOPHILIC FACTOR, HUMAN RECOMBINANT
     Dosage: INFUSED A DOUBLE DOSE ON SATURDAY
     Route: 042
     Dates: start: 20210410, end: 20210410
  3. KOGENATE FS [Suspect]
     Active Substance: ANTIHEMOPHILIC FACTOR, HUMAN RECOMBINANT
     Dosage: UNK; INFUSED THE NEXT DAY
     Route: 042
     Dates: start: 20210509, end: 20210509
  4. KOGENATE FS [Suspect]
     Active Substance: ANTIHEMOPHILIC FACTOR, HUMAN RECOMBINANT
     Dosage: DOUBLE DOSE FOR RIGHT CALF BLEED
     Dates: start: 20210803
  5. KOGENATE FS [Suspect]
     Active Substance: ANTIHEMOPHILIC FACTOR, HUMAN RECOMBINANT
     Dosage: FREQUENTLY INJECTS TO TREAT JOINT PAINS AND SOFT TISSUE BLEEDS
     Route: 042
  6. KOGENATE FS [Suspect]
     Active Substance: ANTIHEMOPHILIC FACTOR, HUMAN RECOMBINANT
     Dosage: DOUBLE DOSE FOR LEFT ELBOW/WRIST BLEED
     Dates: start: 20210806
  7. KOGENATE FS [Suspect]
     Active Substance: ANTIHEMOPHILIC FACTOR, HUMAN RECOMBINANT
     Dosage: 2 DF, ONCE; INFUSED DOUBLE DOSE FOR LEFT WRIST BLEED
     Route: 042
     Dates: start: 20210424, end: 20210424
  8. KOGENATE FS [Suspect]
     Active Substance: ANTIHEMOPHILIC FACTOR, HUMAN RECOMBINANT
     Dosage: 6750 U
     Route: 042
  9. KOGENATE FS [Suspect]
     Active Substance: ANTIHEMOPHILIC FACTOR, HUMAN RECOMBINANT
     Dosage: 2 DF, ONCE; INFUSED DOUBLE DOSE RIGHT AWAY
     Route: 042
     Dates: start: 20210508, end: 20210508
  10. KOGENATE FS [Suspect]
     Active Substance: ANTIHEMOPHILIC FACTOR, HUMAN RECOMBINANT
     Dosage: 4 DF; FOR LEFT ELBOW BLEED
     Route: 042
     Dates: start: 202105
  11. KOGENATE FS [Suspect]
     Active Substance: ANTIHEMOPHILIC FACTOR, HUMAN RECOMBINANT
     Dosage: 4 DF; FOR LEFT WRIST BLEED
     Route: 042
     Dates: start: 202106
  12. KOGENATE FS [Suspect]
     Active Substance: ANTIHEMOPHILIC FACTOR, HUMAN RECOMBINANT
     Dosage: ONE DOUBLE DOSE AND ONE SINGLE DOSE FOR RIGHT KNEE BLEED
     Dates: start: 20210821, end: 20210821
  13. KOGENATE FS [Suspect]
     Active Substance: ANTIHEMOPHILIC FACTOR, HUMAN RECOMBINANT
     Dosage: ONE DOUBLE DOSE FOR LEFT ELBOW BLEED
     Dates: start: 20210828, end: 20210828
  14. KOGENATE FS [Suspect]
     Active Substance: ANTIHEMOPHILIC FACTOR, HUMAN RECOMBINANT
     Dosage: 1 DF TO TREAT BRUISE ON LEFT HIP
     Dates: start: 20201121, end: 20201121
  15. KOGENATE FS [Suspect]
     Active Substance: ANTIHEMOPHILIC FACTOR, HUMAN RECOMBINANT
     Dosage: 6750 U
     Route: 042
  16. KOGENATE FS [Suspect]
     Active Substance: ANTIHEMOPHILIC FACTOR, HUMAN RECOMBINANT
     Dosage: 3 DF, TO TREAT RIGHT HAND BLEED
     Route: 042
     Dates: start: 20201205, end: 20201205
  17. KOGENATE FS [Suspect]
     Active Substance: ANTIHEMOPHILIC FACTOR, HUMAN RECOMBINANT
     Dosage: SINGLE DOSE NEXT DAY TO TREAT ELBOW INJURY.
     Dates: start: 20210116, end: 20210116
  18. KOGENATE FS [Suspect]
     Active Substance: ANTIHEMOPHILIC FACTOR, HUMAN RECOMBINANT
     Dosage: 2 DF; FOR RIGHT ANKLE BLEED
     Dates: start: 2021
  19. KOGENATE FS [Suspect]
     Active Substance: ANTIHEMOPHILIC FACTOR, HUMAN RECOMBINANT
     Dosage: 1 DF, ONCE (TO TREAT LEFT WRIST PAIN)
     Route: 042
     Dates: start: 20201019, end: 20201019
  20. KOGENATE FS [Suspect]
     Active Substance: ANTIHEMOPHILIC FACTOR, HUMAN RECOMBINANT
     Dosage: 1 DF, ONCE (TO TREAT BRUISING ON LEFT FOOT)
     Route: 042
     Dates: start: 20201025, end: 20201025
  21. KOGENATE FS [Suspect]
     Active Substance: ANTIHEMOPHILIC FACTOR, HUMAN RECOMBINANT
     Dosage: 1 DF, ONCE ( TO TREAT RT THIGH CONTUSION)DOUBLE DOSE.
  22. KOGENATE FS [Suspect]
     Active Substance: ANTIHEMOPHILIC FACTOR, HUMAN RECOMBINANT
     Dosage: 1 DF, ONCE, TO TREAT LEFT ANKLE BLEED, SINGLE DOSE
     Dates: start: 20201106, end: 20201106
  23. KOGENATE FS [Suspect]
     Active Substance: ANTIHEMOPHILIC FACTOR, HUMAN RECOMBINANT
     Dosage: USED DOUBLE DOSE TO TREAT RIGHT KNEE BLEED
     Route: 042
     Dates: start: 20201216, end: 20201216
  24. KOGENATE FS [Suspect]
     Active Substance: ANTIHEMOPHILIC FACTOR, HUMAN RECOMBINANT
     Dosage: USED DOUBLE DOSE ON FIRST DAY FOR HIT 3 KNUCKLES ON LEFT HAND WHILE TILING FLOOR AND SCRAPED SKIN OF
  25. KOGENATE FS [Suspect]
     Active Substance: ANTIHEMOPHILIC FACTOR, HUMAN RECOMBINANT
     Dosage: USED SINGLE DOSE THE NEXT FOR HIT 3 KNUCKLES ON LEFT HAND WHILE TILING FLOOR AND SCRAPED SKIN OFF
  26. KOGENATE FS [Suspect]
     Active Substance: ANTIHEMOPHILIC FACTOR, HUMAN RECOMBINANT
     Dosage: 1 DF, ONCE; INFUSED SINGLE DOSE ON 3RD DAY
     Route: 042
     Dates: start: 20210510, end: 20210510
  27. KOGENATE FS [Suspect]
     Active Substance: ANTIHEMOPHILIC FACTOR, HUMAN RECOMBINANT
     Dosage: 1 DF; FOR RIGHT KNEE BLEED
     Dates: start: 2021
  28. KOGENATE FS [Suspect]
     Active Substance: ANTIHEMOPHILIC FACTOR, HUMAN RECOMBINANT
     Dosage: 1 DF, ONCE (TO TREAT RIGHT WRIST PAIN)
     Route: 042
     Dates: start: 20201022, end: 20201022
  29. KOGENATE FS [Suspect]
     Active Substance: ANTIHEMOPHILIC FACTOR, HUMAN RECOMBINANT
     Dosage: INFUSED A DOUBLE DOSE FRIDAY
     Route: 042
     Dates: start: 20210409, end: 20210409
  30. KOGENATE FS [Suspect]
     Active Substance: ANTIHEMOPHILIC FACTOR, HUMAN RECOMBINANT
     Dosage: 2 DF; FOR RIGHT SHOULDER BLEED
     Route: 042
     Dates: start: 202105, end: 202105
  31. KOGENATE FS [Suspect]
     Active Substance: ANTIHEMOPHILIC FACTOR, HUMAN RECOMBINANT
     Dosage: 1 UNK TO TREAT LEFT ANKLE BLEED, DOUBLE DOSE.
     Dates: start: 20201105, end: 20201105
  32. KOGENATE FS [Suspect]
     Active Substance: ANTIHEMOPHILIC FACTOR, HUMAN RECOMBINANT
     Dosage: DOUBLE DOSE 6 HOURS LATER TO ELBOW INJURY TO TREAT THE EVENT
     Dates: start: 20210115, end: 20210115
  33. KOGENATE FS [Suspect]
     Active Substance: ANTIHEMOPHILIC FACTOR, HUMAN RECOMBINANT
     Dosage: INFUSED A SINGLE DOSE ON SUNDAY
     Route: 042
     Dates: start: 20210411, end: 20210411

REACTIONS (27)
  - Haemorrhage [Recovered/Resolved]
  - Haemorrhage [Recovered/Resolved]
  - Arthralgia [None]
  - Joint injury [Recovered/Resolved]
  - Limb injury [Recovered/Resolved]
  - Soft tissue haemorrhage [None]
  - Haemarthrosis [Recovered/Resolved]
  - Haemarthrosis [Recovered/Resolved]
  - Haemorrhage [Recovered/Resolved]
  - Arthralgia [None]
  - Contusion [None]
  - Skin abrasion [Recovered/Resolved]
  - Haemorrhage [Recovered/Resolved]
  - Joint injury [Recovered/Resolved]
  - Haemorrhage [Recovered/Resolved]
  - Arthralgia [None]
  - Contusion [Recovered/Resolved]
  - Haemorrhage [Recovered/Resolved]
  - Haemarthrosis [Recovered/Resolved]
  - Haemarthrosis [Recovered/Resolved]
  - Haemarthrosis [Recovered/Resolved]
  - Haemarthrosis [None]
  - Haemarthrosis [None]
  - Traumatic haemorrhage [Recovered/Resolved]
  - Contusion [None]
  - Limb injury [Recovered/Resolved]
  - Haemarthrosis [Recovered/Resolved]

NARRATIVE: CASE EVENT DATE: 20201019
